FAERS Safety Report 5315539-4 (Version None)
Quarter: 2007Q2

REPORT INFORMATION
  Report Type: 
  Country: None (occurrence: None)
  Receive Date: 20070501
  Receipt Date: 20070501
  Transmission Date: 20071010
  Serious: Yes (Life-Threatening)
  Sender: FDA-Public Use
  Company Number: None

PATIENT
  Age: 47 Year
  Sex: Female
  Weight: 83.9154 kg

DRUGS (2)
  1. LOVASTATIN [Suspect]
     Indication: BLOOD CHOLESTEROL
     Dosage: 40 MG ONCE A DAY PO
     Route: 048
     Dates: start: 20070326, end: 20070423
  2. LOVASTATIN [Suspect]
     Indication: BLOOD CHOLESTEROL
     Dosage: 40 MG ONCE A DAY PO
     Route: 048
     Dates: start: 20070424, end: 20070429

REACTIONS (5)
  - ARTHRITIS [None]
  - HYPOAESTHESIA [None]
  - MYALGIA [None]
  - MYOPATHY [None]
  - PAIN [None]
